FAERS Safety Report 10420846 (Version 2)
Quarter: 2014Q4

REPORT INFORMATION
  Report Type: Spontaneous
  Country: US (occurrence: None)
  Receive Date: 20140714
  Receipt Date: 20141015
  Transmission Date: 20150528
  Serious: Yes (Other)
  Sender: FDA-Public Use
  Company Number: 2014US003284

PATIENT
  Age: 50 Year
  Sex: Female
  Weight: 62 kg

DRUGS (8)
  1. ASPIRIN. [Concomitant]
     Active Substance: ASPIRIN
  2. URSODIL (URSODEOXYCHOLIC ACID) [Concomitant]
  3. ATIVAN [Concomitant]
     Active Substance: LORAZEPAM
  4. FLUCONAZOLE. [Concomitant]
     Active Substance: FLUCONAZOLE
  5. TACROLIMUS. [Concomitant]
     Active Substance: TACROLIMUS
  6. FAMVIR (FAMCICLOVIR) [Concomitant]
  7. MAGNESIUM OXIDE. [Concomitant]
     Active Substance: MAGNESIUM OXIDE
  8. ICLUSIG [Suspect]
     Active Substance: PONATINIB
     Indication: CHRONIC MYELOID LEUKAEMIA
     Route: 048
     Dates: start: 20140122, end: 20140428

REACTIONS (3)
  - Thrombocytopenia [None]
  - Anaemia [None]
  - Constipation [None]

NARRATIVE: CASE EVENT DATE: 20140429
